FAERS Safety Report 5983456-2 (Version None)
Quarter: 2008Q4

REPORT INFORMATION
  Report Type: 
  Country: None (occurrence: None)
  Receive Date: 20081205
  Receipt Date: 20081205
  Transmission Date: 20090506
  Serious: Yes (Hospitalization)
  Sender: FDA-Public Use
  Company Number: None

PATIENT
  Age: 81 Year
  Sex: Female
  Weight: 71.6683 kg

DRUGS (2)
  1. LYRICA [Suspect]
     Indication: NEURALGIA
     Dosage: 100 MG 3X DAILY MOUTH
     Route: 048
  2. LYRICA [Suspect]
     Dosage: 50 MG 3X DAILY

REACTIONS (5)
  - FALL [None]
  - IMMOBILE [None]
  - MUSCLE DISORDER [None]
  - MUSCLE SPASMS [None]
  - NAUSEA [None]
